FAERS Safety Report 5281091-5 (Version None)
Quarter: 2007Q1

REPORT INFORMATION
  Report Type: 
  Country: None (occurrence: None)
  Receive Date: 20061229
  Receipt Date: 20060619
  Transmission Date: 20070707
  Serious: Yes (Other)
  Sender: FDA-Public Use
  Company Number: 2006UW12966

PATIENT
  Age: 57 Year
  Sex: Female
  Weight: 86.182 kg

DRUGS (8)
  1. CRESTOR [Suspect]
     Indication: BLOOD CHOLESTEROL INCREASED
     Dosage: 10 MG
     Dates: start: 20060110
  2. CYMBALTA [Concomitant]
  3. ARIMIDEX [Concomitant]
  4. PRILOSEC [Concomitant]
  5. ERYTHRO [Concomitant]
  6. VITAMIN B COMPLEX CAP [Concomitant]
  7. MOBIG FISH OIL [Concomitant]
  8. CALCIUM [Concomitant]

REACTIONS (2)
  - DRUG INEFFECTIVE [None]
  - HIGH DENSITY LIPOPROTEIN DECREASED [None]
